FAERS Safety Report 17204728 (Version 2)
Quarter: 2019Q4

REPORT INFORMATION
  Report Type: Report from Study
  Country: None (occurrence: US)
  Receive Date: 20191226
  Receipt Date: 20191229
  Transmission Date: 20200122
  Serious: Yes (Hospitalization)
  Sender: FDA-Public Use
  Company Number: US-ABBVIE-19K-163-3210539-00

PATIENT
  Age: 56 Year
  Sex: Male

DRUGS (1)
  1. VENCLEXTA [Suspect]
     Active Substance: VENETOCLAX
     Indication: ACUTE MYELOID LEUKAEMIA
     Dosage: WITH BREAKFAST
     Route: 048
     Dates: end: 201912

REACTIONS (1)
  - Stem cell therapy [Unknown]

NARRATIVE: CASE EVENT DATE: 201912
